FAERS Safety Report 10697291 (Version 1)
Quarter: 2015Q1

REPORT INFORMATION
  Report Type: Spontaneous
  Country: ES (occurrence: ES)
  Receive Date: 20150108
  Receipt Date: 20150108
  Transmission Date: 20150721
  Serious: Yes (Other)
  Sender: FDA-Public Use
  Company Number: ES-THROMBOGENICS NV-SPO-2014-1577

PATIENT
  Age: 65 Year
  Sex: Female

DRUGS (12)
  1. JETREA [Suspect]
     Active Substance: OCRIPLASMIN
     Indication: MACULAR HOLE
  2. ALOPURINOL [Concomitant]
     Active Substance: ALLOPURINOL
     Dosage: 100 MG, 1-5 TABLET/DAY
  3. JETREA [Suspect]
     Active Substance: OCRIPLASMIN
     Indication: VITREOUS ADHESIONS
     Dosage: 0.125 MG, ONE TIME DOSE
     Route: 031
     Dates: start: 20141211, end: 20141211
  4. HIDROFEROL [Concomitant]
     Active Substance: CALCIFEDIOL
     Dosage: 266 MG, 1 AMPOULE/15 DAYS
  5. ORFIDAL [Concomitant]
     Active Substance: LORAZEPAM
     Dosage: 1 MG, 1 TABLET/DAY
  6. ALDACTONE [Concomitant]
     Active Substance: SPIRONOLACTONE
     Dosage: 25 MG, 1 TABLET/DAY
  7. ENALAPRIL [Concomitant]
     Active Substance: ENALAPRIL
     Dosage: 5 MG, 1 TABLET/DAY
  8. FUROSEMIDA                         /00032601/ [Concomitant]
     Active Substance: FUROSEMIDE
     Dosage: 40 MG, 1 TABLET/12 HOURS
  9. OMEPRAZOLUM [Concomitant]
     Dosage: 20 MG, 1 TABLET/DAY
  10. SUMIAL [Concomitant]
     Active Substance: PROPRANOLOL HYDROCHLORIDE
     Dosage: 10 MG, 1 TABLET/12 HOURS
  11. TIMOLOL [Concomitant]
     Active Substance: TIMOLOL
     Indication: OPTIC DISC DRUSEN
     Dosage: 0.5 MG
     Dates: start: 20110405, end: 20141215
  12. NOLOTIL                            /00473101/ [Concomitant]
     Active Substance: METAMIZOLE
     Dosage: 575 MG, 1 CAPSULE/DAY

REACTIONS (7)
  - Vitreous floaters [Recovered/Resolved]
  - Visual acuity reduced transiently [Recovered/Resolved]
  - Anterior chamber cell [Recovered/Resolved]
  - Vision blurred [Recovered/Resolved]
  - Iridocyclitis [Recovered/Resolved]
  - Photopsia [Recovered/Resolved]
  - Subretinal fluid [Unknown]

NARRATIVE: CASE EVENT DATE: 20141211
